FAERS Safety Report 12290798 (Version 2)
Quarter: 2016Q2

REPORT INFORMATION
  Report Type: Spontaneous
  Country: US (occurrence: US)
  Receive Date: 20160421
  Receipt Date: 20160616
  Transmission Date: 20160815
  Serious: No
  Sender: FDA-Public Use
  Company Number: US-PFIZER INC-2016205971

PATIENT
  Age: 81 Year
  Sex: Male
  Weight: 88 kg

DRUGS (6)
  1. ADVIL PM [Suspect]
     Active Substance: DIPHENHYDRAMINE CITRATE\IBUPROFEN
     Indication: PAIN
     Dosage: 2 DF, DAILY
     Dates: start: 201512
  2. DORZOLAMIDE HCL-TIMOLOL [Concomitant]
     Indication: GLAUCOMA
     Dosage: 1 GTT, 2X/DAY IN RIGHT EYE
     Route: 047
  3. NEXIUM [Concomitant]
     Active Substance: ESOMEPRAZOLE MAGNESIUM
     Indication: ANTACID THERAPY
     Dosage: 40 MG, 1X/DAY
  4. LORAZEPAM. [Concomitant]
     Active Substance: LORAZEPAM
     Indication: RELAXATION THERAPY
  5. LORAZEPAM. [Concomitant]
     Active Substance: LORAZEPAM
     Indication: SLEEP DISORDER
     Dosage: 2 MG, 1X/DAY
  6. ALPHAGAN P [Concomitant]
     Active Substance: BRIMONIDINE TARTRATE
     Indication: GLAUCOMA
     Dosage: 1 GTT, 2X/DAY IN RIGHT EYE
     Route: 047

REACTIONS (4)
  - Abdominal pain upper [Not Recovered/Not Resolved]
  - Drug effect decreased [Unknown]
  - Abdominal pain [Unknown]
  - Condition aggravated [Unknown]

NARRATIVE: CASE EVENT DATE: 201604
